FAERS Safety Report 8382109-3 (Version None)
Quarter: 2012Q2

REPORT INFORMATION
  Report Type: 
  Country: None (occurrence: None)
  Receive Date: 20120504
  Receipt Date: 20120420
  Transmission Date: 20120825
  Serious: Yes (Hospitalization, Other)
  Sender: FDA-Public Use
  Company Number: 2012PROUSA01263

PATIENT
  Age: 71 Year
  Sex: Male
  Weight: 127.4 kg

DRUGS (14)
  1. SIMVASTATIN [Concomitant]
  2. PROVENGE [Suspect]
     Indication: PROSTATE CANCER METASTATIC
     Dosage: 250 ML, SINGLE, INTRAVENOUS
     Route: 042
     Dates: start: 20120329, end: 20120329
  3. PROVENGE [Suspect]
     Indication: PROSTATE CANCER METASTATIC
     Dosage: 250 ML, SINGLE, INTRAVENOUS
     Route: 042
     Dates: start: 20120316, end: 20120316
  4. ASPIORIN (ACETYLSALICYLIC ACID) [Concomitant]
  5. DILTIAZEM [Concomitant]
  6. FUROSEMIDE [Concomitant]
  7. METOPROLOL TARTRATE [Concomitant]
  8. WARFARIN SODIUM [Concomitant]
  9. ZOLEDRONIC ACID [Concomitant]
  10. DEGARELIX (DEGARELIX) [Concomitant]
  11. MULTIVITAMIN (ASCORBIC ACID, CALCIUM PANTOTHENATE, ERGOCALCIFEROL, NIC [Concomitant]
  12. ALLOPURINOL [Concomitant]
  13. PROVENGE [Suspect]
  14. FAMOTIDINE [Concomitant]

REACTIONS (7)
  - FATIGUE [None]
  - DISEASE PROGRESSION [None]
  - PNEUMONIA [None]
  - BACK PAIN [None]
  - LYMPHADENOPATHY [None]
  - LUNG NEOPLASM [None]
  - ATRIAL FIBRILLATION [None]
